FAERS Safety Report 8771512 (Version 1)
Quarter: 2012Q4

REPORT INFORMATION
  Report Type: 
  Country: DE (occurrence: DE)
  Receive Date: 20120906
  Receipt Date: 20120906
  Transmission Date: 20130627
  Serious: Yes (Hospitalization)
  Sender: FDA-Public Use
  Company Number: DE-GLAXOSMITHKLINE-D0076618A

PATIENT
  Age: 65 None
  Sex: Female
  Weight: 60 kg

DRUGS (2)
  1. VALTREX [Suspect]
     Indication: ORAL HERPES
     Dosage: 1000MG Twice per day
     Route: 048
     Dates: start: 20120801
  2. TRAMAL [Suspect]
     Dosage: 30DROP Unknown
     Route: 048
     Dates: start: 20120801

REACTIONS (9)
  - Delirium [Recovered/Resolved]
  - Agitation [Recovered/Resolved]
  - Disturbance in attention [Recovered/Resolved]
  - Personality change [Recovered/Resolved]
  - Dizziness [Recovered/Resolved]
  - Nausea [Recovered/Resolved]
  - Vomiting [Recovered/Resolved]
  - Hypertension [Recovered/Resolved]
  - Urinary retention [Recovered/Resolved]
